FAERS Safety Report 7537532 (Version 4)
Quarter: 2014Q1

REPORT INFORMATION
  Report Type: Spontaneous
  Country: US (occurrence: US)
  Receive Date: 20100811
  Receipt Date: 20140110
  Transmission Date: 20141002
  Serious: Yes (Other)
  Sender: FDA-Public Use
  Company Number: US-PFIZER INC-2010096987

PATIENT
  Age: 43 Year
  Sex: Female
  Weight: 70.3 kg

DRUGS (9)
  1. RELPAX [Suspect]
     Indication: MIGRAINE
     Dosage: 40 MG, AS NEEDED
     Route: 048
     Dates: start: 2007
  2. SPIRIVA [Concomitant]
     Dosage: 18 UG, 1X/DAY
  3. ALBUTEROL [Concomitant]
     Dosage: UNK
  4. SINGULAIR [Concomitant]
     Indication: ASTHMA
     Dosage: UNK
  5. ALLEGRA-D [Concomitant]
     Indication: HYPERSENSITIVITY
     Dosage: UNK
  6. ADDERALL [Concomitant]
     Indication: MULTIPLE SCLEROSIS
     Dosage: UNK
  7. XANAX [Concomitant]
     Indication: VERTIGO
     Dosage: UNK
  8. VALIUM [Concomitant]
     Indication: VERTIGO
     Dosage: UNK
  9. RESTORIL [Concomitant]
     Indication: VERTIGO
     Dosage: UNK

REACTIONS (10)
  - Fibromyalgia [Not Recovered/Not Resolved]
  - Cardiac disorder [Unknown]
  - Blood pressure fluctuation [Unknown]
  - Vertigo [Unknown]
  - Impaired driving ability [Unknown]
  - Gait disturbance [Unknown]
  - Multiple sclerosis [Unknown]
  - Nerve injury [Unknown]
  - Pain [Not Recovered/Not Resolved]
  - Migraine [Not Recovered/Not Resolved]
